FAERS Safety Report 5312230-5 (Version None)
Quarter: 2007Q2

REPORT INFORMATION
  Report Type: 
  Country: None (occurrence: None)
  Receive Date: 20070430
  Receipt Date: 20061017
  Transmission Date: 20071010
  Serious: Yes (Hospitalization, Other)
  Sender: FDA-Public Use
  Company Number: 2006UW17852

PATIENT
  Age: 90 Year
  Sex: Female
  Weight: 50 kg

DRUGS (13)
  1. NEXIUM [Suspect]
     Route: 048
     Dates: start: 20050318, end: 20060601
  2. PRILOSEC [Suspect]
     Indication: GASTROOESOPHAGEAL REFLUX DISEASE
     Route: 048
     Dates: start: 20060602, end: 20060714
  3. TYLENOL ES [Concomitant]
  4. SYNTHROID [Concomitant]
  5. MULTI-VITAMIN [Concomitant]
  6. EVISTA [Concomitant]
  7. DOCUSATE SODIUM [Concomitant]
  8. NAMENDA [Concomitant]
  9. OSCAL [Concomitant]
  10. MILK OF MAGNESIA [Concomitant]
  11. DULCOLAX [Concomitant]
     Route: 054
  12. SODIUM PHOSPHATES [Concomitant]
  13. LORAZEPAM [Concomitant]

REACTIONS (2)
  - PLATELET COUNT DECREASED [None]
  - THROMBOCYTOPENIA [None]
